FAERS Safety Report 22256129 (Version 1)
Quarter: 2023Q2

REPORT INFORMATION
  Report Type: Spontaneous
  Country: DE (occurrence: DE)
  Receive Date: 20230426
  Receipt Date: 20230426
  Transmission Date: 20230722
  Serious: Yes (Other)
  Sender: FDA-Public Use
  Company Number: None

PATIENT
  Sex: Female
  Weight: 100 kg

DRUGS (1)
  1. PYLERA [Suspect]
     Active Substance: BISMUTH SUBCITRATE POTASSIUM\METRONIDAZOLE\TETRACYCLINE HYDROCHLORIDE
     Indication: Helicobacter infection
     Dosage: 3 DF, Q6HR
     Route: 048
     Dates: start: 20230220, end: 20230225

REACTIONS (7)
  - Poisoning [Recovering/Resolving]
  - Decreased appetite [Recovering/Resolving]
  - Renal pain [Recovering/Resolving]
  - Food aversion [Recovering/Resolving]
  - Cardiovascular disorder [Recovering/Resolving]
  - Retching [Recovering/Resolving]
  - Nausea [Recovering/Resolving]

NARRATIVE: CASE EVENT DATE: 20230201
